FAERS Safety Report 18797143 (Version 2)
Quarter: 2021Q1

REPORT INFORMATION
  Report Type: Report from Study
  Country: US (occurrence: US)
  Receive Date: 20210128
  Receipt Date: 20210323
  Transmission Date: 20210419
  Serious: Yes (Hospitalization, Other)
  Sender: FDA-Public Use
  Company Number: US-ASTRAZENECA-2021A010599

PATIENT
  Age: 27673 Day
  Sex: Female

DRUGS (9)
  1. TAGRISSO [Suspect]
     Active Substance: OSIMERTINIB
     Indication: NON-SMALL CELL LUNG CANCER
     Route: 048
     Dates: start: 20210104
  2. OXYCODONE [Concomitant]
     Active Substance: OXYCODONE
  3. VITAMIN D3 [Concomitant]
     Active Substance: CHOLECALCIFEROL
  4. METOPROLOL. [Suspect]
     Active Substance: METOPROLOL
     Route: 065
  5. OMEPRAZOLE. [Suspect]
     Active Substance: OMEPRAZOLE
     Route: 065
  6. NABUMETONE. [Concomitant]
     Active Substance: NABUMETONE
  7. AMLODIPINE BESYLATE. [Concomitant]
     Active Substance: AMLODIPINE BESYLATE
  8. IPRATROPIUM [Concomitant]
     Active Substance: IPRATROPIUM
  9. LORAZEPAM. [Concomitant]
     Active Substance: LORAZEPAM

REACTIONS (3)
  - Metastases to spine [Unknown]
  - Fall [Not Recovered/Not Resolved]
  - Diarrhoea [Not Recovered/Not Resolved]
